FAERS Safety Report 4411732-3 (Version None)
Quarter: 2004Q3

REPORT INFORMATION
  Report Type: 
  Country: None (occurrence: None)
  Receive Date: 20040728
  Receipt Date: 20040715
  Transmission Date: 20050211
  Serious: Yes (Life-Threatening, Disabling)
  Sender: FDA-Public Use
  Company Number: GB-JNJFOC-20040704188

PATIENT
  Age: 16 Year
  Sex: Female
  Weight: 56.7 kg

DRUGS (9)
  1. NORETHISTERONE (NORETHISTERONE) [Suspect]
     Dosage: 5 MG, ORAL
     Route: 048
     Dates: start: 20040606, end: 20040616
  2. IFOSFAMIDE [Suspect]
     Indication: BONE SARCOMA
     Dosage: 4 G, INTRAVENOUS
     Route: 042
     Dates: start: 20040524
  3. GRANISETRON (GRANISETRON) [Concomitant]
  4. DEXAMETHASONE [Concomitant]
  5. ETOPOSIDE [Concomitant]
  6. MESNA [Concomitant]
  7. ACYCLOVIR [Concomitant]
  8. METHOTREXATE [Concomitant]
  9. FOLINIC ACID (FOLINIC ACID) [Concomitant]

REACTIONS (2)
  - DRUG INTERACTION [None]
  - TRANSIENT ISCHAEMIC ATTACK [None]
